FAERS Safety Report 10206142 (Version 1)
Quarter: 2014Q2

REPORT INFORMATION
  Report Type: Spontaneous
  Country: US (occurrence: US)
  Receive Date: 20140530
  Receipt Date: 20140530
  Transmission Date: 20141212
  Serious: No
  Sender: FDA-Public Use
  Company Number: US-PFIZER INC-2014146252

PATIENT
  Age: 52 Year
  Sex: Female

DRUGS (1)
  1. CORTEF [Suspect]
     Indication: HORMONE THERAPY
     Dosage: 5 MG, 3X/DAY
     Dates: end: 201403

REACTIONS (1)
  - Feeling abnormal [Recovered/Resolved]
